FAERS Safety Report 7534361-1 (Version None)
Quarter: 2011Q2

REPORT INFORMATION
  Report Type: 
  Country: None (occurrence: None)
  Receive Date: 20110608
  Receipt Date: 20110520
  Transmission Date: 20111010
  Serious: Yes (Other)
  Sender: FDA-Public Use
  Company Number: US-AMGEN-USASP2011026367

PATIENT

DRUGS (3)
  1. XGEVA [Suspect]
     Indication: BONE DISORDER
     Dosage: 120 MG, Q4WK
     Dates: start: 20110201
  2. CALCIUM CARBONATE [Concomitant]
  3. VITAMIN A [Concomitant]

REACTIONS (1)
  - HYPOCALCAEMIA [None]
